FAERS Safety Report 23889178 (Version 3)
Quarter: 2024Q4

REPORT INFORMATION
  Report Type: Spontaneous
  Country: AU (occurrence: AU)
  Receive Date: 20240523
  Receipt Date: 20241104
  Transmission Date: 20250114
  Serious: Yes (Life-Threatening, Hospitalization, Other)
  Sender: ALEXION PHARMACEUTICALS
  Company Number: 2024A119930

PATIENT
  Age: 56 Year

DRUGS (45)
  1. ESOMEPRAZOLE [Suspect]
     Active Substance: ESOMEPRAZOLE
     Indication: Product used for unknown indication
     Dosage: 0.5 DAY
     Route: 065
  2. ESOMEPRAZOLE [Suspect]
     Active Substance: ESOMEPRAZOLE
     Dosage: 0.5 DAY
  3. ESOMEPRAZOLE [Suspect]
     Active Substance: ESOMEPRAZOLE
     Dosage: 0.5 DAY
     Route: 065
  4. ESOMEPRAZOLE [Suspect]
     Active Substance: ESOMEPRAZOLE
     Dosage: 0.5 DAY
  5. ROSUVASTATIN CALCIUM [Suspect]
     Active Substance: ROSUVASTATIN CALCIUM
     Indication: Product used for unknown indication
     Dosage: 10 MILLIGRAM, UNK
  6. ROSUVASTATIN CALCIUM [Suspect]
     Active Substance: ROSUVASTATIN CALCIUM
     Dosage: 10 MILLIGRAM, UNK
  7. ROSUVASTATIN CALCIUM [Suspect]
     Active Substance: ROSUVASTATIN CALCIUM
     Dosage: 10 MILLIGRAM, UNK
     Route: 065
  8. ROSUVASTATIN CALCIUM [Suspect]
     Active Substance: ROSUVASTATIN CALCIUM
     Dosage: 10 MILLIGRAM, UNK
     Route: 065
  9. ROSUVASTATIN CALCIUM [Suspect]
     Active Substance: ROSUVASTATIN CALCIUM
  10. ROSUVASTATIN CALCIUM [Suspect]
     Active Substance: ROSUVASTATIN CALCIUM
  11. ANASTROZOLE [Suspect]
     Active Substance: ANASTROZOLE
     Indication: Breast cancer
     Dosage: IN MORNING
  12. ANASTROZOLE [Suspect]
     Active Substance: ANASTROZOLE
     Dosage: IN MORNING
  13. ANASTROZOLE [Suspect]
     Active Substance: ANASTROZOLE
     Dosage: IN MORNING
  14. ANASTROZOLE [Suspect]
     Active Substance: ANASTROZOLE
     Dosage: IN MORNING
  15. APIXABAN [Suspect]
     Active Substance: APIXABAN
     Indication: Product used for unknown indication
     Dosage: 0.5 DAY
     Route: 065
  16. APIXABAN [Suspect]
     Active Substance: APIXABAN
     Dosage: 0.5 DAY
  17. APIXABAN [Suspect]
     Active Substance: APIXABAN
     Dosage: 0.5 DAY
  18. NOVORAPID [Suspect]
     Active Substance: INSULIN ASPART
     Indication: Product used for unknown indication
     Dosage: 5 IU 0.33 DAY
     Route: 065
  19. NOVORAPID [Suspect]
     Active Substance: INSULIN ASPART
     Dosage: 5 IU 0.33 DAY
  20. NOVORAPID [Suspect]
     Active Substance: INSULIN ASPART
     Dosage: 0.33 DAY
  21. INSULIN GLARGINE [Suspect]
     Active Substance: INSULIN GLARGINE
     Indication: Product used for unknown indication
     Dosage: 18 IU 0.5 DAY
     Route: 065
  22. INSULIN GLARGINE [Suspect]
     Active Substance: INSULIN GLARGINE
     Dosage: 18 IU 0.5 DAY
  23. INSULIN GLARGINE [Suspect]
     Active Substance: INSULIN GLARGINE
     Dosage: 0.5 DAY
  24. PHENERGAN [Suspect]
     Active Substance: PROMETHAZINE HYDROCHLORIDE
     Indication: Local reaction
  25. PHENERGAN [Suspect]
     Active Substance: PROMETHAZINE HYDROCHLORIDE
     Route: 065
  26. FAMOTIDINE [Suspect]
     Active Substance: FAMOTIDINE
     Indication: Mast cell activation syndrome
     Dosage: 0.5 DAY
     Route: 065
  27. FAMOTIDINE [Suspect]
     Active Substance: FAMOTIDINE
     Dosage: 0.5 DAY
  28. FAMOTIDINE [Suspect]
     Active Substance: FAMOTIDINE
     Dosage: 0.5 DAY
  29. LORATADINE [Suspect]
     Active Substance: LORATADINE
     Indication: Mast cell activation syndrome
     Dosage: 0.5 DAY
     Route: 065
  30. LORATADINE [Suspect]
     Active Substance: LORATADINE
     Dosage: 0.5 DAY
  31. LORATADINE [Suspect]
     Active Substance: LORATADINE
     Dosage: 0.5 DAY
  32. LORATADINE [Suspect]
     Active Substance: LORATADINE
  33. DAPAGLIFLOZIN PROPANEDIOL\METFORMIN HYDROCHLORIDE [Suspect]
     Active Substance: DAPAGLIFLOZIN PROPANEDIOL\METFORMIN HYDROCHLORIDE
     Indication: Diabetes mellitus
     Dosage: 0.5 DAY
     Route: 065
  34. DAPAGLIFLOZIN PROPANEDIOL\METFORMIN HYDROCHLORIDE [Suspect]
     Active Substance: DAPAGLIFLOZIN PROPANEDIOL\METFORMIN HYDROCHLORIDE
     Dosage: 0.5 DAY
  35. DAPAGLIFLOZIN PROPANEDIOL\METFORMIN HYDROCHLORIDE [Suspect]
     Active Substance: DAPAGLIFLOZIN PROPANEDIOL\METFORMIN HYDROCHLORIDE
     Dosage: 0.5 DAY
  36. MONTELUKAST [Suspect]
     Active Substance: MONTELUKAST
     Indication: Mast cell activation syndrome
     Dosage: AT NIGHT
     Route: 065
  37. MONTELUKAST [Suspect]
     Active Substance: MONTELUKAST
     Dosage: AT NIGHT
  38. MONTELUKAST [Suspect]
     Active Substance: MONTELUKAST
     Dosage: AT NIGHT
  39. ALBUTEROL SULFATE [Suspect]
     Active Substance: ALBUTEROL SULFATE
     Indication: Product used for unknown indication
     Dosage: TIME INTERVAL: AS NECESSARY
     Route: 065
  40. ALBUTEROL SULFATE [Suspect]
     Active Substance: ALBUTEROL SULFATE
     Dosage: TIME INTERVAL: AS NECESSARY
  41. ALBUTEROL SULFATE [Suspect]
     Active Substance: ALBUTEROL SULFATE
     Dosage: TIME INTERVAL: AS NECESSARY
  42. PFIZER-BIONTECH COVID-19 VACCINE [Suspect]
     Active Substance: TOZINAMERAN
     Indication: COVID-19 immunisation
     Dosage: SECOND DOSE
     Route: 065
  43. PFIZER-BIONTECH COVID-19 VACCINE [Suspect]
     Active Substance: TOZINAMERAN
     Indication: COVID-19 immunisation
     Dosage: SECOND DOSE
  44. PFIZER-BIONTECH COVID-19 VACCINE [Suspect]
     Active Substance: TOZINAMERAN
     Dosage: SECOND DOSE
  45. PFIZER-BIONTECH COVID-19 VACCINE [Suspect]
     Active Substance: TOZINAMERAN
     Dosage: HAD TOLERATED THE FIRS

REACTIONS (15)
  - Upper respiratory tract infection [Unknown]
  - Respiratory failure [Recovering/Resolving]
  - Pneumonia [Unknown]
  - Anaphylactic reaction [Recovering/Resolving]
  - Pneumonia haemophilus [Unknown]
  - Mouth haemorrhage [Unknown]
  - COVID-19 [Unknown]
  - Tongue biting [Unknown]
  - Human rhinovirus test positive [Unknown]
  - Respiratory syncytial virus test positive [Unknown]
  - Respiratory failure [Unknown]
  - Tongue injury [Unknown]
  - Viral test positive [Unknown]
  - Respiratory syncytial virus test positive [Unknown]
  - Pneumonia [Unknown]
